FAERS Safety Report 6950311-0 (Version None)
Quarter: 2010Q3

REPORT INFORMATION
  Report Type: 
  Country: None (occurrence: None)
  Receive Date: 20100828
  Receipt Date: 20100203
  Transmission Date: 20110219
  Serious: No
  Sender: FDA-Public Use
  Company Number: US-ABBOTT-10P-163-0623965-00

PATIENT
  Sex: Male
  Weight: 74.91 kg

DRUGS (10)
  1. NIASPAN [Suspect]
     Indication: CORONARY ARTERY DISEASE
     Route: 048
     Dates: start: 20100101
  2. SUCRALFATE [Concomitant]
     Indication: COLITIS ULCERATIVE
  3. SUCRALFATE [Concomitant]
     Indication: CROHN'S DISEASE
  4. BYSTOLIC [Concomitant]
     Indication: BLOOD PRESSURE
  5. EXFORGE [Concomitant]
     Indication: BLOOD PRESSURE
  6. SYNTHROID [Concomitant]
     Indication: PRODUCT USED FOR UNKNOWN INDICATION
  7. PROTONIX [Concomitant]
     Indication: COLITIS ULCERATIVE
  8. PROTONIX [Concomitant]
     Indication: CROHN'S DISEASE
  9. WELCHOL [Concomitant]
     Indication: PRODUCT USED FOR UNKNOWN INDICATION
  10. ASPIRIN [Concomitant]
     Indication: PRODUCT USED FOR UNKNOWN INDICATION

REACTIONS (2)
  - DIARRHOEA [None]
  - OESOPHAGEAL DISORDER [None]
